FAERS Safety Report 8607896 (Version 4)
Quarter: 2012Q4

REPORT INFORMATION
  Report Type: 
  Country: CN (occurrence: CN)
  Receive Date: 20120611
  Receipt Date: 20121126
  Transmission Date: 20130627
  Serious: Yes (Death)
  Sender: FDA-Public Use
  Company Number: DE-RANBAXY-2012US-57052

PATIENT

DRUGS (10)
  1. PANTOLOC [Suspect]
     Indication: PROPHYLAXIS
     Dosage: 40 mg, bid
     Route: 048
  2. PANTOLOC [Suspect]
     Indication: PROPHYLAXIS
     Dosage: 40 mg, daily
     Route: 042
  3. ACETYL SALICYLIC ACID [Concomitant]
     Indication: ACUTE CORONARY SYNDROME
     Dosage: UNK
     Route: 065
  4. ACETYL SALICYLIC ACID [Concomitant]
     Dosage: 100mg/day
     Route: 065
  5. CLOPIDOGREL [Concomitant]
     Indication: ACUTE CORONARY SYNDROME
     Dosage: UNK
     Route: 065
  6. CLOPIDOGREL [Concomitant]
     Dosage: 75mg/day
     Route: 065
  7. TIROFIBAN [Concomitant]
     Indication: ACUTE CORONARY SYNDROME
     Dosage: 0.4 mcg/kg/min infusion for 30 min
     Route: 041
  8. TIROFIBAN [Concomitant]
     Dosage: 0.1 mcg/kg/min
     Route: 041
  9. ENOXAPARIN [Concomitant]
     Indication: ACUTE CORONARY SYNDROME
     Dosage: 40 mg, bid
     Route: 058
  10. ENOXAPARIN [Concomitant]
     Dosage: 1mg/kg 12 hours
     Route: 058

REACTIONS (1)
  - Death [Fatal]
